FAERS Safety Report 15858628 (Version 1)
Quarter: 2019Q1

REPORT INFORMATION
  Report Type: Spontaneous
  Country: US (occurrence: US)
  Receive Date: 20190123
  Receipt Date: 20190123
  Transmission Date: 20190417
  Serious: Yes (Hospitalization)
  Sender: FDA-Public Use
  Company Number: None

PATIENT
  Age: 17 Month
  Sex: Male

DRUGS (7)
  1. TOBRAMYCIN. [Suspect]
     Active Substance: TOBRAMYCIN
     Indication: CYSTIC FIBROSIS
     Route: 055
  2. LIDOCAINE. [Concomitant]
     Active Substance: LIDOCAINE
  3. PULMOZYME [Suspect]
     Active Substance: DORNASE ALFA
     Indication: CYSTIC FIBROSIS
     Route: 055
  4. PULMOZYME [Concomitant]
     Active Substance: DORNASE ALFA
  5. ACETAMIN [Concomitant]
     Active Substance: ACETAMINOPHEN
  6. IBUPROFEN. [Concomitant]
     Active Substance: IBUPROFEN
  7. TOBRAMYCIN. [Concomitant]
     Active Substance: TOBRAMYCIN

REACTIONS (1)
  - Cystic fibrosis [None]

NARRATIVE: CASE EVENT DATE: 20190106
